FAERS Safety Report 9861364 (Version 2)
Quarter: 2014Q1

REPORT INFORMATION
  Report Type: Spontaneous
  Country: IT (occurrence: IT)
  Receive Date: 20140203
  Receipt Date: 20140218
  Transmission Date: 20141002
  Serious: Yes (Death)
  Sender: FDA-Public Use
  Company Number: IT-ROCHE-1342567

PATIENT
  Age: 82 Year
  Sex: Male

DRUGS (9)
  1. LUCENTIS [Suspect]
     Indication: AGE-RELATED MACULAR DEGENERATION
     Route: 050
     Dates: start: 20131126
  2. PANTOPRAZOLE [Concomitant]
  3. CARDIOASPIRIN [Concomitant]
  4. POLYSACCHARIDE-IRON COMPLEX [Concomitant]
  5. TRIATEC (ITALY) [Concomitant]
  6. ZOCOR [Concomitant]
  7. OMNIC [Concomitant]
  8. HALCION [Concomitant]
  9. IGROTON [Concomitant]

REACTIONS (3)
  - Anoxia [Fatal]
  - Cardiac arrest [Fatal]
  - Ventricular fibrillation [Fatal]
